FAERS Safety Report 22382979 (Version 1)
Quarter: 2023Q2

REPORT INFORMATION
  Report Type: Spontaneous
  Country: GB (occurrence: None)
  Receive Date: 20230530
  Receipt Date: 20230530
  Transmission Date: 20230721
  Serious: Yes (Other)
  Sender: FDA-Public Use
  Company Number: 2023A120863

PATIENT
  Sex: Female
  Weight: 61.5 kg

DRUGS (1)
  1. DAPAGLIFLOZIN [Suspect]
     Active Substance: DAPAGLIFLOZIN
     Route: 048

REACTIONS (12)
  - Renal tubular disorder [Unknown]
  - Asthma [Unknown]
  - Atrial fibrillation [Unknown]
  - Blood lactic acid increased [Unknown]
  - Hypokalaemia [Unknown]
  - Hypophosphataemia [Unknown]
  - Hypomagnesaemia [Unknown]
  - Sinus tachycardia [Unknown]
  - Supraventricular tachycardia [Unknown]
  - Tachycardia [Unknown]
  - Drug abuse [Unknown]
  - Hypocalcaemia [Unknown]
